FAERS Safety Report 9491600 (Version 1)
Quarter: 2013Q3

REPORT INFORMATION
  Report Type: Spontaneous
  Country: ZA (occurrence: ZA)
  Receive Date: 20130830
  Receipt Date: 20130830
  Transmission Date: 20140515
  Serious: Yes (Hospitalization)
  Sender: FDA-Public Use
  Company Number: ZA-NOVOPROD-386137

PATIENT
  Sex: Female

DRUGS (2)
  1. PROTAPHANE FLEXPEN [Suspect]
     Indication: GESTATIONAL DIABETES
     Dosage: 30 UNITS
     Route: 065
  2. NOVORAPID FLEXPEN [Suspect]
     Indication: GESTATIONAL DIABETES
     Dosage: 2 U, TID
     Route: 065

REACTIONS (3)
  - Cystitis [Unknown]
  - Suture insertion [Unknown]
  - Exposure during pregnancy [Unknown]
